FAERS Safety Report 9095254 (Version 1)
Quarter: 2013Q1

REPORT INFORMATION
  Report Type: Spontaneous
  Country: SA (occurrence: None)
  Receive Date: 20130122
  Receipt Date: 20130122
  Transmission Date: 20140127
  Serious: Yes (Other)
  Sender: FDA-Public Use
  Company Number: 2013ST000013

PATIENT
  Age: 44 Year
  Sex: Female

DRUGS (6)
  1. METFORMIN (METFORMIN) [Suspect]
     Indication: DIABETES MELLITUS
  2. PREDNISOLONE [Concomitant]
  3. TRAMADOL [Concomitant]
  4. CALCIUM [Concomitant]
  5. HYDROXYCHLOROQUINE [Concomitant]
  6. ASPIRIN [Concomitant]

REACTIONS (1)
  - Drug-induced liver injury [None]
